FAERS Safety Report 12547937 (Version 1)
Quarter: 2016Q3

REPORT INFORMATION
  Report Type: Spontaneous
  Country: US (occurrence: None)
  Receive Date: 20160711
  Receipt Date: 20160711
  Transmission Date: 20161109
  Serious: Yes (Life-Threatening)
  Sender: FDA-Public Use
  Company Number: None

PATIENT
  Age: 13 Year
  Weight: 49.9 kg

DRUGS (1)
  1. COPPERTONE WATER BABIES SPF 50 [Suspect]
     Active Substance: AVOBENZONE\HOMOSALATE\OCTISALATE\OCTOCRYLENE\OXYBENZONE
     Indication: PRODUCT USED FOR UNKNOWN INDICATION
     Dosage: APPLIED TO A SURFACE, USUALLY THE SKIN
     Route: 061

REACTIONS (2)
  - Anaphylactic reaction [None]
  - Hypersensitivity [None]

NARRATIVE: CASE EVENT DATE: 20160703
